FAERS Safety Report 9095929 (Version 2)
Quarter: 2013Q1

REPORT INFORMATION
  Report Type: Spontaneous
  Country: FR (occurrence: FR)
  Receive Date: 20130220
  Receipt Date: 20130222
  Transmission Date: 20140127
  Serious: Yes (Other)
  Sender: FDA-Public Use
  Company Number: FR-PFIZER INC-2013059657

PATIENT
  Age: 2 Year
  Sex: Male
  Weight: 13.5 kg

DRUGS (1)
  1. ADVIL ENFANTS ET NOURRISSONS [Suspect]
     Indication: NASOPHARYNGITIS
     Dosage: 1DF, EVERY 8 HOURS, IN TOTAL 3 DF DAILY
     Route: 048
     Dates: start: 20130114, end: 20130116

REACTIONS (3)
  - Oliguria [Recovered/Resolved]
  - Chromaturia [Recovered/Resolved]
  - Crying [Recovered/Resolved]
